FAERS Safety Report 9796655 (Version 1)
Quarter: 2014Q1

REPORT INFORMATION
  Report Type: Spontaneous
  Country: US (occurrence: US)
  Receive Date: 20140103
  Receipt Date: 20140103
  Transmission Date: 20141002
  Serious: Yes (Hospitalization)
  Sender: FDA-Public Use
  Company Number: US-GLAXOSMITHKLINE-A1033079A

PATIENT
  Sex: Female

DRUGS (3)
  1. FLOLAN [Suspect]
     Indication: PULMONARY ARTERIAL HYPERTENSION
     Dosage: 55NGKM CONTINUOUS
     Route: 042
     Dates: start: 20020322
  2. ADCIRCA [Concomitant]
  3. TRACLEER [Concomitant]

REACTIONS (3)
  - Duodenal ulcer perforation [Unknown]
  - Hyperhidrosis [Unknown]
  - Application site erythema [Unknown]
